FAERS Safety Report 9505612 (Version 1)
Quarter: 2013Q1

REPORT INFORMATION
  Report Type: Spontaneous
  Country: US (occurrence: None)
  Receive Date: 20130221
  Receipt Date: 20130221
  Transmission Date: 20140127
  Serious: Yes (Disabling)
  Sender: FDA-Public Use
  Company Number: 1205USA05418

PATIENT
  Age: 75 Year
  Sex: Male

DRUGS (2)
  1. PRINIVIL [Suspect]
     Indication: HYPERTENSION
     Route: 048
     Dates: start: 2010, end: 20120529
  2. MK-9378 (METFORMIN) TABLET [Concomitant]

REACTIONS (2)
  - Dysphagia [None]
  - Speech disorder [None]
